FAERS Safety Report 10935534 (Version 2)
Quarter: 2015Q2

REPORT INFORMATION
  Report Type: Spontaneous
  Country: US (occurrence: US)
  Receive Date: 20150320
  Receipt Date: 20150505
  Transmission Date: 20150821
  Serious: No
  Sender: FDA-Public Use
  Company Number: US-GLAXOSMITHKLINE-US2015033782

PATIENT
  Sex: Female

DRUGS (6)
  1. ADVAIR DISKUS [Suspect]
     Active Substance: FLUTICASONE PROPIONATE\SALMETEROL XINAFOATE
     Indication: PNEUMONIA
     Dosage: 1 PUFF(S), BID
     Route: 055
  2. ZITHROMAX [Concomitant]
     Active Substance: AZITHROMYCIN DIHYDRATE
  3. BENZONATATE. [Concomitant]
     Active Substance: BENZONATATE
  4. VENTOLIN HFA [Concomitant]
     Active Substance: ALBUTEROL SULFATE
  5. PREDNISONE. [Concomitant]
     Active Substance: PREDNISONE
  6. ADVAIR DISKUS [Suspect]
     Active Substance: FLUTICASONE PROPIONATE\SALMETEROL XINAFOATE
     Indication: ASTHMA

REACTIONS (4)
  - Dyspnoea [Recovering/Resolving]
  - Drug ineffective [Recovering/Resolving]
  - Off label use [Unknown]
  - Product quality issue [Unknown]
